FAERS Safety Report 24967750 (Version 2)
Quarter: 2025Q1

REPORT INFORMATION
  Report Type: Report from Study
  Country: US (occurrence: US)
  Receive Date: 20250214
  Receipt Date: 20250324
  Transmission Date: 20250409
  Serious: Yes (Other)
  Sender: ABBVIE
  Company Number: US-ABBVIE-6129142

PATIENT
  Age: 64 Year
  Sex: Female

DRUGS (2)
  1. SKYRIZI [Suspect]
     Active Substance: RISANKIZUMAB-RZAA
     Indication: Psoriasis
     Route: 058
     Dates: start: 2024
  2. SKYRIZI [Suspect]
     Active Substance: RISANKIZUMAB-RZAA
     Route: 058
     Dates: start: 20220511

REACTIONS (4)
  - Knee arthroplasty [Recovering/Resolving]
  - Knee operation [Not Recovered/Not Resolved]
  - Influenza [Unknown]
  - Medical device removal [Not Recovered/Not Resolved]

NARRATIVE: CASE EVENT DATE: 20240129
